FAERS Safety Report 10142326 (Version 3)
Quarter: 2015Q3

REPORT INFORMATION
  Report Type: Report from Study
  Country: BR (occurrence: BR)
  Receive Date: 20140429
  Receipt Date: 20150706
  Transmission Date: 20151125
  Serious: Yes (Hospitalization, Other)
  Sender: FDA-Public Use
  Company Number: PHHY2014BR051114

PATIENT
  Sex: Female
  Weight: 42 kg

DRUGS (7)
  1. ZOTEON [Suspect]
     Active Substance: TOBRAMYCIN
     Indication: CYSTIC FIBROSIS
     Dosage: 4 DF, BID (2 CYCLES 28 DAYS EACH)
     Route: 055
  2. SERTRALINE [Concomitant]
     Active Substance: SERTRALINE HYDROCHLORIDE
     Indication: DEPRESSION
     Dosage: 1.5 DF, QD
     Route: 065
     Dates: start: 201310
  3. TOBRAMYCIN. [Concomitant]
     Active Substance: TOBRAMYCIN
     Indication: RESPIRATORY TRACT INFECTION
     Dosage: 1 DF (1 INHALATION EACH 28 DAYS), UNK (START: 10 YEARS AGO)
     Route: 055
  4. CREON [Concomitant]
     Active Substance: PANCRELIPASE AMYLASE\PANCRELIPASE LIPASE\PANCRELIPASE PROTEASE
     Indication: PANCREATIC ENZYMES DECREASED
     Dosage: 18 DF (18 CAPSULE, 25000 UNITS OF LIPASE, 3 CAPSULES EACH MEAL, 6 MEALS), QD
     Route: 048
  5. RISPERIDONE. [Concomitant]
     Active Substance: RISPERIDONE
     Indication: DEPRESSION
     Dosage: 0.5 DF, QD
     Route: 065
     Dates: start: 201310
  6. PULMOZYME [Concomitant]
     Active Substance: DORNASE ALFA
     Indication: CYSTIC FIBROSIS
     Dosage: 1 DF (1 AMOPULE), QD
     Route: 065
  7. INSULIN [Concomitant]
     Active Substance: INSULIN NOS
     Indication: DIABETES MELLITUS
     Dosage: 12 U
     Route: 065
     Dates: start: 200910

REACTIONS (1)
  - Respiratory tract infection [Recovering/Resolving]
